FAERS Safety Report 9383482 (Version 1)
Quarter: 2013Q3

REPORT INFORMATION
  Report Type: Spontaneous
  Country: FR (occurrence: FR)
  Receive Date: 20130704
  Receipt Date: 20130704
  Transmission Date: 20140515
  Serious: Yes (Hospitalization)
  Sender: FDA-Public Use
  Company Number: FR-PFIZER INC-2013193654

PATIENT
  Age: 57 Year
  Sex: Male

DRUGS (3)
  1. VIAGRA [Suspect]
     Dosage: LESS THAN 1 DF, WEEKLY
     Route: 048
     Dates: start: 2006, end: 201305
  2. OMEXEL [Concomitant]
     Dosage: UNK
  3. IBUPROFEN [Concomitant]
     Indication: PAIN
     Dosage: UNK, ON DEMAND

REACTIONS (1)
  - Optic ischaemic neuropathy [Not Recovered/Not Resolved]
